FAERS Safety Report 11699994 (Version 1)
Quarter: 2015Q4

REPORT INFORMATION
  Report Type: Spontaneous
  Country: TW (occurrence: TW)
  Receive Date: 20151105
  Receipt Date: 20151105
  Transmission Date: 20160304
  Serious: Yes (Hospitalization, Other)
  Sender: FDA-Public Use
  Company Number: TW-MACLEODS PHARMACEUTICALS US LTD-MAC2015002130

PATIENT

DRUGS (3)
  1. TRIHEXYPHENIDYL [Suspect]
     Active Substance: TRIHEXYPHENIDYL
     Indication: SCHIZOPHRENIA
     Dosage: 4 MG, QD
     Route: 065
  2. TRAZODONE [Suspect]
     Active Substance: TRAZODONE HYDROCHLORIDE
     Indication: SCHIZOPHRENIA
     Dosage: 50 MG, QD
     Route: 065
  3. OLANZAPINE. [Suspect]
     Active Substance: OLANZAPINE
     Indication: SCHIZOPHRENIA
     Dosage: 20 MG, QD
     Route: 065

REACTIONS (1)
  - Heat stroke [Recovered/Resolved]
